FAERS Safety Report 4565930-9 (Version None)
Quarter: 2005Q1

REPORT INFORMATION
  Report Type: 
  Country: None (occurrence: None)
  Receive Date: 20050131
  Receipt Date: 20050121
  Transmission Date: 20050727
  Serious: Yes (Other)
  Sender: FDA-Public Use
  Company Number: JP-MERCK-0501USA03982

PATIENT

DRUGS (5)
  1. PEPCID [Suspect]
     Route: 048
  2. MARZULENE-S [Concomitant]
     Route: 048
  3. CLARITHROMYCIN [Concomitant]
     Route: 048
  4. LASIX [Concomitant]
     Route: 048
  5. HOKUNALIN [Concomitant]
     Route: 061

REACTIONS (1)
  - RHABDOMYOLYSIS [None]
